FAERS Safety Report 5554544-X (Version None)
Quarter: 2007Q4

REPORT INFORMATION
  Report Type: 
  Country: None (occurrence: None)
  Receive Date: 20071213
  Receipt Date: 20071203
  Transmission Date: 20080405
  Serious: Yes (Life-Threatening, Hospitalization)
  Sender: FDA-Public Use
  Company Number: US-GENENTECH-252405

PATIENT
  Sex: Female

DRUGS (2)
  1. BEVACIZUMAB [Suspect]
     Indication: BREAST CANCER
     Dosage: 10 MG/KG, DAYS 1+15
     Route: 042
     Dates: start: 20040520
  2. TAXOL [Suspect]
     Indication: BREAST CANCER
     Dosage: 90 MG/M2, 1/WEEK
     Route: 042
     Dates: start: 20040520

REACTIONS (6)
  - ARRHYTHMIA SUPRAVENTRICULAR [None]
  - DISEASE PROGRESSION [None]
  - DYSPNOEA [None]
  - LEFT VENTRICULAR FAILURE [None]
  - MYOCARDIAL ISCHAEMIA [None]
  - PLEURAL EFFUSION [None]
